FAERS Safety Report 4428811-7 (Version None)
Quarter: 2004Q3

REPORT INFORMATION
  Report Type: 
  Country: None (occurrence: None)
  Receive Date: 20040818
  Receipt Date: 20040813
  Transmission Date: 20050211
  Serious: Yes (Other)
  Sender: FDA-Public Use
  Company Number: US-GLAXOSMITHKLINE-A0522118A

PATIENT
  Age: 50 Year
  Sex: Male

DRUGS (2)
  1. PAXIL CR [Suspect]
     Indication: DEPRESSION
     Dosage: 25MG PER DAY
     Route: 048
     Dates: start: 20040601
  2. HYDROXYZINE [Concomitant]

REACTIONS (4)
  - ANOREXIA [None]
  - DEPRESSION [None]
  - SUICIDAL IDEATION [None]
  - WEIGHT DECREASED [None]
